FAERS Safety Report 17139253 (Version 1)
Quarter: 2019Q4

REPORT INFORMATION
  Report Type: Spontaneous
  Country: US (occurrence: US)
  Receive Date: 20191211
  Receipt Date: 20191211
  Transmission Date: 20200122
  Serious: Yes (Other)
  Sender: FDA-Public Use
  Company Number: US-AUROBINDO-AUR-APL-2019-103910

PATIENT
  Age: 73 Year
  Sex: Female

DRUGS (8)
  1. PROPOFOL. [Concomitant]
     Active Substance: PROPOFOL
     Indication: SEDATION
     Dosage: UNK, AT A RATE OF 80MCG/KG/MIN FIRST 87 MIN
     Route: 065
  2. MORPHINE [Suspect]
     Active Substance: MORPHINE
     Indication: SPINAL ANAESTHESIA
     Dosage: 0.2 MILLIGRAM (AT L3-4 TO BEGIN THE SPINAL ANESTHESIA)
     Route: 037
  3. EPHEDRINE. [Concomitant]
     Active Substance: EPHEDRINE
     Indication: HYPOTENSION
     Dosage: 10 MILLIGRAM
     Route: 042
  4. FENTANYL. [Suspect]
     Active Substance: FENTANYL
     Dosage: 50 MICROGRAM, TWO TIMES A DAY
     Route: 042
  5. CEFAZOLIN [Concomitant]
     Active Substance: CEFAZOLIN
     Indication: INFECTION
     Dosage: 2 GRAM
     Route: 042
  6. PROPOFOL. [Concomitant]
     Active Substance: PROPOFOL
     Dosage: UNK 100 MCG/KG/MIN
     Route: 065
  7. BUPIVACAINE HYDROCHLORIDE 0.5% (5 MG/ML) [Suspect]
     Active Substance: BUPIVACAINE HYDROCHLORIDE
     Indication: SPINAL ANAESTHESIA
     Dosage: UNK 2.75 ML OF 0.5 %
     Route: 065
  8. FENTANYL. [Suspect]
     Active Substance: FENTANYL
     Indication: SPINAL ANAESTHESIA
     Dosage: 100 MICROGRAM
     Route: 042

REACTIONS (3)
  - Haematocrit decreased [Recovered/Resolved]
  - Anaemia [Recovered/Resolved]
  - Confusional state [Recovered/Resolved]
